FAERS Safety Report 10053547 (Version 3)
Quarter: 2014Q2

REPORT INFORMATION
  Report Type: Spontaneous
  Country: US (occurrence: US)
  Receive Date: 20140402
  Receipt Date: 20140612
  Transmission Date: 20141212
  Serious: No
  Sender: FDA-Public Use
  Company Number: US-PFIZER INC-2014090293

PATIENT
  Age: 57 Year
  Sex: Female
  Weight: 113.37 kg

DRUGS (1)
  1. ADVIL [Suspect]
     Indication: NASOPHARYNGITIS
     Dosage: UNK
     Route: 048
     Dates: start: 2013, end: 201403

REACTIONS (9)
  - Off label use [Unknown]
  - Poor quality drug administered [Unknown]
  - Hypoaesthesia oral [Recovered/Resolved]
  - Dysgeusia [Recovered/Resolved]
  - Feeling abnormal [Recovered/Resolved]
  - Paraesthesia [Recovered/Resolved]
  - Pain [Recovered/Resolved]
  - Product physical issue [Unknown]
  - Product taste abnormal [Unknown]
